FAERS Safety Report 5197995-8 (Version None)
Quarter: 2007Q1

REPORT INFORMATION
  Report Type: 
  Country: None (occurrence: None)
  Receive Date: 20070104
  Receipt Date: 20061222
  Transmission Date: 20070707
  Serious: Yes (Hospitalization)
  Sender: FDA-Public Use
  Company Number: US-BRISTOL-MYERS SQUIBB COMPANY-13530605

PATIENT
  Age: 69 Year
  Sex: Female

DRUGS (4)
  1. CISPLATIN [Suspect]
     Indication: GASTRIC CANCER
     Route: 041
     Dates: start: 20060814, end: 20060814
  2. FLUOROURACIL [Suspect]
     Indication: GASTRIC CANCER
     Dosage: 1000MG/M2/DAILY, CONTINUOUS INFUSION X 5 DAYS EVERY 28 DAYS...
     Route: 041
     Dates: start: 20060814, end: 20060818
  3. ARANESP [Concomitant]
     Indication: ANAEMIA
     Route: 058
     Dates: start: 20060517
  4. KEFLEX [Concomitant]
     Indication: MUCOSAL INFLAMMATION
     Route: 048
     Dates: start: 20060822, end: 20060801

REACTIONS (4)
  - DEHYDRATION [None]
  - MUCOSAL INFLAMMATION [None]
  - NEUTROPENIA [None]
  - PAIN [None]
